FAERS Safety Report 5624926-6 (Version None)
Quarter: 2008Q1

REPORT INFORMATION
  Report Type: 
  Country: None (occurrence: None)
  Receive Date: 20080213
  Receipt Date: 20080208
  Transmission Date: 20080703
  Serious: Yes (Hospitalization)
  Sender: FDA-Public Use
  Company Number: AU-SANOFI-SYNTHELABO-A01200801430

PATIENT
  Age: 56 Year
  Sex: Female

DRUGS (5)
  1. MICARDIS [Concomitant]
  2. FLUOROURACIL [Suspect]
     Dosage: UNK
     Route: 042
  3. BEVACIZUMAB [Suspect]
     Dosage: UNK
     Route: 042
     Dates: start: 20070213, end: 20070213
  4. OXALIPLATIN [Suspect]
     Route: 042
  5. FOLINIC ACID [Suspect]
     Route: 042

REACTIONS (4)
  - CARDIOMYOPATHY [None]
  - CHEST PAIN [None]
  - ELECTROCARDIOGRAM ST SEGMENT ELEVATION [None]
  - PULMONARY OEDEMA [None]
